FAERS Safety Report 7933164-3 (Version None)
Quarter: 2011Q4

REPORT INFORMATION
  Report Type: 
  Country: None (occurrence: None)
  Receive Date: 20111122
  Receipt Date: 20111116
  Transmission Date: 20120403
  Serious: Yes (Hospitalization)
  Sender: FDA-Public Use
  Company Number: FR-EISAI INC-E2080-00356-SPO-FR

PATIENT
  Sex: Male
  Weight: 17 kg

DRUGS (8)
  1. DEPAKENE [Concomitant]
     Route: 048
  2. INOVELON [Suspect]
     Route: 048
     Dates: start: 20100723, end: 20100919
  3. VALPROATE SODIUM [Suspect]
     Dosage: 200 MG IN AM, 250 MG IN PM
     Route: 048
     Dates: start: 20080701, end: 20100930
  4. INOVELON [Suspect]
     Dosage: WEEKLY INCREASE BY STEP FROM 50 MG/D TO 300 MG TWICE DAILY
     Route: 048
     Dates: start: 20100101
  5. VALPROATE SODIUM [Suspect]
     Route: 048
     Dates: start: 20101001
  6. URBANYL [Suspect]
     Route: 048
     Dates: start: 20100226
  7. INOVELON [Suspect]
     Route: 048
     Dates: start: 20100920, end: 20100101
  8. AUGMENTIN [Suspect]
     Dosage: UNKNOWN
     Route: 048
     Dates: start: 20100915, end: 20100925

REACTIONS (4)
  - VITAMIN K DEFICIENCY [None]
  - HAEMATOMA [None]
  - COAGULATION FACTOR DECREASED [None]
  - ECCHYMOSIS [None]
